FAERS Safety Report 4567662-X (Version None)
Quarter: 2005Q1

REPORT INFORMATION
  Report Type: 
  Country: None (occurrence: None)
  Receive Date: 20050114
  Receipt Date: 20050114
  Transmission Date: 20050727
  Serious: Yes (Life-Threatening, Hospitalization)
  Sender: FDA-Public Use
  Company Number: None

PATIENT
  Age: 50 Year
  Sex: Female
  Weight: 86.1834 kg

DRUGS (1)
  1. PHENYTOIN [Suspect]
     Indication: CONVULSION
     Dosage: 100 MG PO TWO AM AND ONE PM
     Route: 048
     Dates: start: 20010101

REACTIONS (3)
  - OBSTRUCTIVE AIRWAYS DISORDER [None]
  - REACTION TO COLOURING [None]
  - WHEEZING [None]
